FAERS Safety Report 24071303 (Version 2)
Quarter: 2024Q3

REPORT INFORMATION
  Report Type: Report from Study
  Country: US (occurrence: US)
  Receive Date: 20240710
  Receipt Date: 20240710
  Transmission Date: 20241017
  Serious: No
  Sender: ROCHE
  Company Number: US-ROCHE-3534449

PATIENT
  Age: 22 Year
  Sex: Female
  Weight: 29.76 kg

DRUGS (1)
  1. EVRYSDI [Suspect]
     Active Substance: RISDIPLAM
     Indication: Spinal muscular atrophy
     Dosage: 5 MG
     Route: 050
     Dates: start: 20220324

REACTIONS (1)
  - Alopecia [Not Recovered/Not Resolved]
